FAERS Safety Report 7989831 (Version 5)
Quarter: 2012Q4

REPORT INFORMATION
  Report Type: 
  Country: JP (occurrence: JP)
  Receive Date: 20110614
  Receipt Date: 20121018
  Transmission Date: 20130627
  Serious: Yes (Life-Threatening, Other)
  Sender: FDA-Public Use
  Company Number: PHHY2011JP48807

PATIENT
  Age: 0 Year
  Sex: Female
  Weight: 2.5 kg

DRUGS (6)
  1. SANDIMMUN [Suspect]
     Indication: ACUTE HEPATIC FAILURE
     Dosage: 0.5 mg/kg, UNK
     Dates: start: 20100630, end: 20100701
  2. SANDIMMUN [Suspect]
     Dosage: 0.2 mg/kg, per day
  3. SOL MEDROL [Concomitant]
     Indication: ACUTE HEPATIC FAILURE
     Dosage: 50 mg, UNK
     Route: 042
     Dates: start: 20100629, end: 20100709
  4. CEFAMEZIN [Concomitant]
     Indication: INFECTION PROPHYLAXIS
     Dosage: 240 mg, UNK
     Route: 042
     Dates: start: 20100630, end: 20100712
  5. GASTER [Concomitant]
     Indication: PROPHYLAXIS
     Dosage: 2 mg, UNK
     Route: 042
     Dates: start: 20100630, end: 20100713
  6. LASIX [Concomitant]
     Dosage: 3 mg, UNK
     Route: 042
     Dates: start: 20100701

REACTIONS (12)
  - Renal failure acute [Recovering/Resolving]
  - Urine output decreased [Unknown]
  - Red blood cell count decreased [Unknown]
  - Haemoglobin decreased [Unknown]
  - Haematocrit decreased [Unknown]
  - Nephrotic syndrome [Unknown]
  - Hypercalcaemia [Unknown]
  - Hyperproteinaemia [Unknown]
  - Hyperalbuminaemia [Unknown]
  - White blood cell count decreased [Unknown]
  - Platelet count decreased [Unknown]
  - Immunosuppressant drug level increased [Unknown]
